FAERS Safety Report 14411441 (Version 2)
Quarter: 2018Q1

REPORT INFORMATION
  Report Type: Spontaneous
  Country: US (occurrence: US)
  Receive Date: 20180119
  Receipt Date: 20180125
  Transmission Date: 20180509
  Serious: Yes (Other)
  Sender: FDA-Public Use
  Company Number: US-GLAXOSMITHKLINE-US2018GSK008123

PATIENT
  Sex: Male

DRUGS (4)
  1. LAMICTAL [Suspect]
     Active Substance: LAMOTRIGINE
     Indication: CEREBRAL DISORDER
  2. LAMICTAL XR [Suspect]
     Active Substance: LAMOTRIGINE
     Indication: SEIZURE
     Dosage: 100 MG, UNK
     Route: 048
     Dates: start: 2009
  3. KEPPRA [Suspect]
     Active Substance: LEVETIRACETAM
     Indication: CEREBRAL DISORDER
  4. LAMICTAL [Suspect]
     Active Substance: LAMOTRIGINE
     Indication: SEIZURE
     Dosage: 7 DF, QD
     Dates: start: 2007

REACTIONS (4)
  - Drug dose omission [Unknown]
  - Ill-defined disorder [Unknown]
  - Motor dysfunction [Unknown]
  - Seizure [Unknown]
